FAERS Safety Report 6106514-0 (Version None)
Quarter: 2009Q1

REPORT INFORMATION
  Report Type: 
  Country: None (occurrence: None)
  Receive Date: 20090304
  Receipt Date: 20090220
  Transmission Date: 20090719
  Serious: Yes (Death)
  Sender: FDA-Public Use
  Company Number: GXKR2009US01982

PATIENT
  Age: 36 Year
  Sex: Female

DRUGS (12)
  1. PROPOXYPHENE HCL [Suspect]
  2. CARBAMAZEPINE [Suspect]
  3. ACETAMINOPHEN [Suspect]
  4. CELEXA [Suspect]
  5. ZYPREXA [Suspect]
     Dosage: 15 MG, QD, UNKNOWN
  6. SOMA [Suspect]
  7. PREVACID [Concomitant]
  8. ATORVASTATIN CALCIUM [Concomitant]
  9. METRONIDAZOLE [Concomitant]
  10. ALLEGRA [Concomitant]
  11. CLONAZEPAM [Concomitant]
  12. BUSPIRONE HCL [Concomitant]

REACTIONS (6)
  - DRUG TOXICITY [None]
  - HEPATOMEGALY [None]
  - LEFT VENTRICULAR HYPERTROPHY [None]
  - OBESITY [None]
  - PULMONARY OEDEMA [None]
  - VISCERAL CONGESTION [None]
